FAERS Safety Report 9057651 (Version 1)
Quarter: 2013Q1

REPORT INFORMATION
  Report Type: Spontaneous
  Country: US (occurrence: None)
  Receive Date: 20130204
  Receipt Date: 20130204
  Transmission Date: 20140127
  Serious: Yes (Other)
  Sender: FDA-Public Use
  Company Number: None

PATIENT
  Age: 64 Year
  Sex: Female
  Weight: 91.17 kg

DRUGS (1)
  1. RESTASIS [Suspect]
     Dosage: 1DROP INTO BOTH EYES TWICE DAILY OPHTHALMIC
     Route: 047
     Dates: start: 20130119, end: 20130127

REACTIONS (3)
  - Vision blurred [None]
  - Eye swelling [None]
  - Rash pruritic [None]
